FAERS Safety Report 8824024 (Version 1)
Quarter: 2012Q4

REPORT INFORMATION
  Report Type: 
  Country: US (occurrence: US)
  Receive Date: 20121003
  Receipt Date: 20121003
  Transmission Date: 20130627
  Serious: Yes (Death, Hospitalization, Other)
  Sender: FDA-Public Use
  Company Number: US-BAXTER-2012BAX018008

PATIENT
  Sex: Female
  Weight: 46.82 kg

DRUGS (2)
  1. GAMMAGARD S/D [Suspect]
     Indication: WALDENSTROM^S MACROGLOBULINEMIA
     Dates: start: 2002
  2. GAMMAGARD S/D [Suspect]
     Indication: INTENTIONAL USE FOR UNLABELED INDICATION

REACTIONS (5)
  - Fall [Fatal]
  - Hip fracture [Fatal]
  - Breast cancer [Recovered/Resolved]
  - Chronic obstructive pulmonary disease [Unknown]
  - Cardiac disorder [Unknown]
